FAERS Safety Report 25585961 (Version 1)
Quarter: 2025Q3

REPORT INFORMATION
  Report Type: Spontaneous
  Country: US (occurrence: None)
  Receive Date: 20250718
  Receipt Date: 20250718
  Transmission Date: 20251020
  Serious: Yes (Other)
  Sender: FDA-CTU
  Company Number: None

PATIENT
  Age: 26 Year
  Sex: Female
  Weight: 55.35 kg

DRUGS (1)
  1. XYZAL [Suspect]
     Active Substance: LEVOCETIRIZINE DIHYDROCHLORIDE
     Dates: start: 20240108, end: 20240715

REACTIONS (5)
  - Pruritus [None]
  - Pruritus [None]
  - Rash [None]
  - Withdrawal syndrome [None]
  - Therapy cessation [None]

NARRATIVE: CASE EVENT DATE: 20240715
